FAERS Safety Report 16231846 (Version 1)
Quarter: 2019Q2

REPORT INFORMATION
  Report Type: Spontaneous
  Country: CA (occurrence: CA)
  Receive Date: 20190424
  Receipt Date: 20190424
  Transmission Date: 20190711
  Serious: Yes (Death)
  Sender: FDA-Public Use
  Company Number: CA-TEVA-2019-CA-1039679

PATIENT

DRUGS (29)
  1. FILGRASTIM [Suspect]
     Active Substance: FILGRASTIM
     Indication: B-CELL LYMPHOMA RECURRENT
     Route: 065
  2. INTERFERON ALFA-2A [Suspect]
     Active Substance: INTERFERON ALFA-2A
     Indication: B-CELL LYMPHOMA RECURRENT
     Route: 058
  3. CYTARABINE. [Suspect]
     Active Substance: CYTARABINE
     Indication: B-CELL LYMPHOMA REFRACTORY
     Route: 042
  4. DEXAMETHASONE. [Suspect]
     Active Substance: DEXAMETHASONE
     Indication: B-CELL LYMPHOMA REFRACTORY
     Route: 048
  5. METHYLPREDNISOLONE. [Suspect]
     Active Substance: METHYLPREDNISOLONE
     Indication: B-CELL LYMPHOMA RECURRENT
  6. VINCRISTINE [Suspect]
     Active Substance: VINCRISTINE
     Indication: B-CELL LYMPHOMA RECURRENT
  7. INTERFERON ALFA-2A [Suspect]
     Active Substance: INTERFERON ALFA-2A
     Indication: B-CELL LYMPHOMA REFRACTORY
  8. DEXAMETHASONE. [Suspect]
     Active Substance: DEXAMETHASONE
     Indication: B-CELL LYMPHOMA RECURRENT
  9. DOXORUBICIN [Suspect]
     Active Substance: DOXORUBICIN
     Indication: B-CELL LYMPHOMA RECURRENT
  10. METHYLPREDNISOLONE. [Suspect]
     Active Substance: METHYLPREDNISOLONE
     Indication: B-CELL LYMPHOMA REFRACTORY
     Dosage: 500 MILLIGRAM DAILY;
     Route: 042
  11. CARMUSTINE. [Suspect]
     Active Substance: CARMUSTINE
     Indication: B-CELL LYMPHOMA RECURRENT
  12. CYCLOPHOSPHAMIDE. [Suspect]
     Active Substance: CYCLOPHOSPHAMIDE
     Indication: B-CELL LYMPHOMA RECURRENT
     Route: 065
  13. CISPLATIN. [Suspect]
     Active Substance: CISPLATIN
     Indication: B-CELL LYMPHOMA REFRACTORY
     Route: 042
  14. FLUDARABINE [Suspect]
     Active Substance: FLUDARABINE PHOSPHATE
     Indication: B-CELL LYMPHOMA REFRACTORY
     Route: 065
  15. FLUDARABINE [Suspect]
     Active Substance: FLUDARABINE PHOSPHATE
     Indication: B-CELL LYMPHOMA RECURRENT
  16. PREDNISONE. [Suspect]
     Active Substance: PREDNISONE
     Indication: B-CELL LYMPHOMA REFRACTORY
     Route: 048
  17. DOXORUBICIN [Suspect]
     Active Substance: DOXORUBICIN
     Indication: B-CELL LYMPHOMA REFRACTORY
     Route: 042
  18. ETOPOSIDE. [Suspect]
     Active Substance: ETOPOSIDE
     Indication: B-CELL LYMPHOMA REFRACTORY
     Dosage: 40 MG/M2 DAILY;
     Route: 065
  19. CARMUSTINE. [Suspect]
     Active Substance: CARMUSTINE
     Indication: B-CELL LYMPHOMA REFRACTORY
     Route: 065
  20. RITUXIMAB. [Suspect]
     Active Substance: RITUXIMAB
     Route: 042
  21. ETOPOSIDE. [Suspect]
     Active Substance: ETOPOSIDE
     Indication: B-CELL LYMPHOMA RECURRENT
     Route: 065
  22. PREDNISONE. [Suspect]
     Active Substance: PREDNISONE
     Indication: B-CELL LYMPHOMA RECURRENT
  23. CISPLATIN. [Suspect]
     Active Substance: CISPLATIN
     Indication: B-CELL LYMPHOMA RECURRENT
     Route: 042
  24. CYTARABINE. [Suspect]
     Active Substance: CYTARABINE
     Indication: B-CELL LYMPHOMA RECURRENT
     Route: 042
  25. VINCRISTINE [Suspect]
     Active Substance: VINCRISTINE
     Indication: B-CELL LYMPHOMA REFRACTORY
     Route: 042
  26. CYCLOPHOSPHAMIDE. [Suspect]
     Active Substance: CYCLOPHOSPHAMIDE
     Indication: B-CELL LYMPHOMA REFRACTORY
     Route: 065
  27. FILGRASTIM [Suspect]
     Active Substance: FILGRASTIM
     Indication: B-CELL LYMPHOMA RECURRENT
  28. RITUXIMAB. [Suspect]
     Active Substance: RITUXIMAB
     Indication: B-CELL LYMPHOMA REFRACTORY
     Route: 042
  29. RITUXIMAB. [Suspect]
     Active Substance: RITUXIMAB
     Indication: B-CELL LYMPHOMA RECURRENT
     Dosage: 53.5714 MG/M2 DAILY;
     Route: 042

REACTIONS (24)
  - Depression [Fatal]
  - Interstitial lung disease [Fatal]
  - Respiratory disorder [Fatal]
  - Bronchitis [Fatal]
  - Fungal infection [Fatal]
  - Pulmonary fibrosis [Fatal]
  - Thyroid cancer [Fatal]
  - Basal cell carcinoma [Fatal]
  - Fatigue [Fatal]
  - Herpes zoster [Fatal]
  - Hypogammaglobulinaemia [Fatal]
  - Infection [Fatal]
  - Thrombocytopenic purpura [Fatal]
  - Respiratory tract infection [Fatal]
  - Squamous cell carcinoma [Fatal]
  - Acute lymphocytic leukaemia [Fatal]
  - Acute myeloid leukaemia [Fatal]
  - Colorectal adenocarcinoma [Fatal]
  - Cytopenia [Fatal]
  - Haemolytic uraemic syndrome [Fatal]
  - Non-small cell lung cancer [Fatal]
  - Atrial fibrillation [Fatal]
  - Diffuse large B-cell lymphoma [Fatal]
  - Myelodysplastic syndrome [Fatal]
